FAERS Safety Report 20697974 (Version 2)
Quarter: 2025Q2

REPORT INFORMATION
  Report Type: Spontaneous
  Country: US (occurrence: US)
  Receive Date: 20220412
  Receipt Date: 20250622
  Transmission Date: 20250716
  Serious: Yes (Other)
  Sender: AUROBINDO
  Company Number: US-AUROBINDO-AUR-APL-2022-011049

PATIENT
  Age: 16 Year
  Sex: Female

DRUGS (1)
  1. PREDNISONE [Suspect]
     Active Substance: PREDNISONE
     Indication: Eosinophilic oesophagitis
     Route: 065

REACTIONS (6)
  - Condition aggravated [Unknown]
  - Mast cell activation syndrome [Unknown]
  - Hunger [Unknown]
  - Irritability [Unknown]
  - Feeling abnormal [Unknown]
  - Fatigue [Unknown]
